FAERS Safety Report 4878412-1 (Version None)
Quarter: 2005Q4

REPORT INFORMATION
  Report Type: 
  Country: None (occurrence: None)
  Receive Date: 20051213
  Receipt Date: 20050816
  Transmission Date: 20060501
  Serious: Yes (Hospitalization)
  Sender: FDA-Public Use
  Company Number: 2005106469

PATIENT
  Age: 60 Year
  Sex: Male

DRUGS (5)
  1. XANAX [Suspect]
     Indication: AGGRESSION
     Dosage: 3 MG (1 MG, 3 IN 1 D)
  2. XANAX [Suspect]
     Indication: IMPATIENCE
     Dosage: 3 MG (1 MG, 3 IN 1 D)
  3. PROPRANOLOL [Concomitant]
  4. ARICET (DONEPEZIL) [Concomitant]
  5. EFFEXOR [Concomitant]

REACTIONS (1)
  - TREMOR [None]
